FAERS Safety Report 18901826 (Version 1)
Quarter: 2021Q1

REPORT INFORMATION
  Report Type: Spontaneous
  Country: US (occurrence: US)
  Receive Date: 20210216
  Receipt Date: 20210216
  Transmission Date: 20210420
  Serious: No
  Sender: FDA-Public Use
  Company Number: US-PFIZER INC-2021121363

PATIENT
  Age: 12 Year
  Sex: Male

DRUGS (2)
  1. GENOTROPIN [Suspect]
     Active Substance: SOMATROPIN
     Dosage: 1 MG, CYCLIC (FOUR DAYS A WEEK)
     Dates: start: 20181115
  2. GENOTROPIN [Suspect]
     Active Substance: SOMATROPIN
     Dosage: 1.2 MG, CYCLIC (THREE DAYS A WEEK)

REACTIONS (3)
  - Device issue [Unknown]
  - Device information output issue [Unknown]
  - Off label use [Unknown]
